FAERS Safety Report 11684558 (Version 1)
Quarter: 2015Q4

REPORT INFORMATION
  Report Type: Spontaneous
  Country: CA (occurrence: CA)
  Receive Date: 20151029
  Receipt Date: 20151029
  Transmission Date: 20160304
  Serious: Yes (Hospitalization, Other)
  Sender: FDA-Public Use
  Company Number: CA-TEVA-603782ACC

PATIENT
  Age: 75 Year
  Sex: Female
  Weight: 50.85 kg

DRUGS (9)
  1. SPORANOX [Interacting]
     Active Substance: ITRACONAZOLE
     Indication: NAIL INFECTION
     Dosage: 400 MILLIGRAM DAILY;
     Route: 048
  2. TRIAMTERENE. [Concomitant]
     Active Substance: TRIAMTERENE
  3. VITAMIN D [Concomitant]
     Active Substance: CHOLECALCIFEROL
  4. ASA [Concomitant]
     Active Substance: ASPIRIN
  5. ROSUVASTATIN [Concomitant]
     Active Substance: ROSUVASTATIN
  6. TEVA-CARBAMAZEPINE [Suspect]
     Active Substance: CARBAMAZEPINE
     Indication: SEIZURE
     Dosage: 800 MILLIGRAM DAILY;
     Route: 048
  7. CLONAZEPAM. [Concomitant]
     Active Substance: CLONAZEPAM
  8. OMEGA - 3 [Concomitant]
  9. FOSINOPRIL [Concomitant]
     Active Substance: FOSINOPRIL

REACTIONS (6)
  - Fall [Unknown]
  - Head injury [Unknown]
  - Drug interaction [Unknown]
  - Haemorrhage intracranial [Unknown]
  - Seizure [Unknown]
  - Anticonvulsant drug level decreased [Unknown]
